FAERS Safety Report 16718753 (Version 1)
Quarter: 2019Q3

REPORT INFORMATION
  Report Type: Spontaneous
  Country: IE (occurrence: IE)
  Receive Date: 20190820
  Receipt Date: 20190820
  Transmission Date: 20191005
  Serious: Yes (Life-Threatening)
  Sender: FDA-Public Use
  Company Number: IE-TEVA-2019-IE-1093994

PATIENT
  Age: 57 Year
  Sex: Female

DRUGS (4)
  1. OLMESARTAN (GENERIC) (G) [Concomitant]
     Dosage: TREATMENT DATES UNKNOWN, 10 MILLIGRAM
     Route: 048
  2. CALCICHEW-D3 FORTE [Concomitant]
     Active Substance: CALCIUM\CHOLECALCIFEROL
     Route: 048
  3. CO-AMOXICLAV (G) [Suspect]
     Active Substance: AMOXICILLIN\CLAVULANATE POTASSIUM
     Dosage: 1.2 GRAM
     Route: 042
     Dates: start: 20190709
  4. ESOMEPRAZOLE (G) [Concomitant]
     Dosage: TREATMENT DATES UNKNOWN
     Route: 048

REACTIONS (2)
  - Retching [Recovered/Resolved]
  - Dysgeusia [Recovered/Resolved]

NARRATIVE: CASE EVENT DATE: 20190709
